FAERS Safety Report 20741128 (Version 1)
Quarter: 2022Q2

REPORT INFORMATION
  Report Type: Report from Study
  Country: CA (occurrence: CA)
  Receive Date: 20220422
  Receipt Date: 20220422
  Transmission Date: 20220721
  Serious: Yes (Other)
  Sender: FDA-Public Use
  Company Number: CA-AMRYT PHARMACEUTICALS DAC-AEGR004694

PATIENT
  Age: 38 Year
  Sex: Female

DRUGS (15)
  1. JUXTAPID [Suspect]
     Active Substance: LOMITAPIDE MESYLATE
     Indication: Type IIa hyperlipidaemia
     Dosage: 5 MG, QD
     Route: 065
     Dates: start: 20170914, end: 20171109
  2. JUXTAPID [Suspect]
     Active Substance: LOMITAPIDE MESYLATE
     Dosage: 10 MG, QD
     Route: 065
     Dates: start: 20171110, end: 20180220
  3. JUXTAPID [Suspect]
     Active Substance: LOMITAPIDE MESYLATE
     Dosage: 15 MG, QD
     Route: 065
     Dates: start: 20180221, end: 20181218
  4. JUXTAPID [Suspect]
     Active Substance: LOMITAPIDE MESYLATE
     Dosage: 20 MG, QD
     Route: 065
     Dates: start: 20181219, end: 20190430
  5. JUXTAPID [Suspect]
     Active Substance: LOMITAPIDE MESYLATE
     Dosage: 25 MG, QD
     Route: 065
     Dates: start: 20190501
  6. JUXTAPID [Suspect]
     Active Substance: LOMITAPIDE MESYLATE
     Dosage: 20 MILLIGRAM, 20 MG AND 25 MG ON ALTERNATE DAYS
     Dates: start: 20200705, end: 20210806
  7. JUXTAPID [Suspect]
     Active Substance: LOMITAPIDE MESYLATE
     Dosage: 25 MILLIGRAM, QD
     Dates: start: 20210807, end: 20220107
  8. JUXTAPID [Suspect]
     Active Substance: LOMITAPIDE MESYLATE
     Dosage: 20 MILLIGRAM, QD
     Dates: start: 20220108
  9. ASPIRIN [Concomitant]
     Active Substance: ASPIRIN
     Indication: Prophylaxis
     Dosage: 81 MG, QD
     Route: 048
     Dates: start: 2004
  10. FERROUS GLUCONATE [Concomitant]
     Active Substance: FERROUS GLUCONATE
     Indication: Iron deficiency
     Dosage: 300 MG, QD
     Route: 048
     Dates: start: 2018
  11. GARDASIL [Concomitant]
     Active Substance: HUMAN PAPILLOMAVIRUS QUADRIVALENT (TYPES 6, 11, 16, AND 18) VACCINE, RECOMBINANT
     Indication: Antiviral prophylaxis
     Dosage: ONCE
     Route: 030
     Dates: start: 2019, end: 2019
  12. OMEGA 3 6 9                        /01334101/ [Concomitant]
     Indication: Product used for unknown indication
     Dosage: UNK, QD
     Route: 048
     Dates: start: 2017
  13. ROSUVASTATIN [Concomitant]
     Active Substance: ROSUVASTATIN
     Indication: Hypercholesterolaemia
     Dosage: 40 MG, QD
     Route: 048
     Dates: start: 2006
  14. VITAMIN E                          /00110501/ [Concomitant]
     Indication: Product used for unknown indication
     Dosage: UNK, QD
     Route: 048
     Dates: start: 2017
  15. EZETIMIBE [Concomitant]
     Active Substance: EZETIMIBE
     Indication: Hypercholesterolaemia
     Dosage: 10 MG, QD
     Dates: start: 2006

REACTIONS (2)
  - Alanine aminotransferase increased [Not Recovered/Not Resolved]
  - Cervical dysplasia [Recovered/Resolved]

NARRATIVE: CASE EVENT DATE: 20190501
